FAERS Safety Report 4553600-2 (Version None)
Quarter: 2004Q4

REPORT INFORMATION
  Report Type: 
  Country: None (occurrence: None)
  Receive Date: 20041227
  Receipt Date: 20041115
  Transmission Date: 20050328
  Serious: No
  Sender: FDA-Public Use
  Company Number: 04P-163-0280550-00

PATIENT
  Age: 72 Year
  Sex: Female
  Weight: 53.0709 kg

DRUGS (8)
  1. HUMIRA [Suspect]
     Indication: RHEUMATOID ARTHRITIS
     Dosage: 40 MG, 1 IN 2 WK, SUBCUTANEOUS
     Route: 058
     Dates: start: 20040101
  2. PRAVASTATIN SODIUM [Concomitant]
  3. ZETIA [Concomitant]
  4. LEVOTHYROXINE SODIUM [Concomitant]
  5. ALENDRONATE SODIUM [Concomitant]
  6. MULTI-VITAMINS [Concomitant]
  7. TOCOPHEROL CONCENTRATE CAP [Concomitant]
  8. CALCIUM GLUCONATE [Concomitant]

REACTIONS (1)
  - COUGH [None]
